FAERS Safety Report 8799253 (Version 1)
Quarter: 2012Q4

REPORT INFORMATION
  Report Type: Spontaneous
  Country: IT (occurrence: None)
  Receive Date: 20120914
  Receipt Date: 20120914
  Transmission Date: 20130627
  Serious: Yes (Other)
  Sender: FDA-Public Use
  Company Number: 1405606

PATIENT
  Age: 33 Year
  Sex: Female

DRUGS (5)
  1. DOCETAXEL [Suspect]
     Dosage: 150 Mg milligram(s), (Cyclical) Intravenous (not otherwise specified)
     Route: 042
     Dates: start: 20120830, end: 20120830
  2. TRIMETON [Concomitant]
  3. ZANTAC [Concomitant]
  4. NAVOBAN [Concomitant]
  5. FLEBOCORTID [Concomitant]

REACTIONS (3)
  - Hyperhidrosis [None]
  - Hypotension [None]
  - Nausea [None]
